FAERS Safety Report 8214877-5 (Version None)
Quarter: 2012Q1

REPORT INFORMATION
  Report Type: 
  Country: None (occurrence: None)
  Receive Date: 20120316
  Receipt Date: 20120307
  Transmission Date: 20120608
  Serious: Yes (Hospitalization, Other)
  Sender: FDA-Public Use
  Company Number: US-JNJFOC-20120305052

PATIENT
  Sex: Female
  Weight: 61.69 kg

DRUGS (3)
  1. INVEGA SUSTENNA [Suspect]
     Indication: PSYCHOTIC DISORDER
     Route: 030
     Dates: start: 20120128, end: 20120128
  2. LITHIUM CARBONATE [Concomitant]
     Indication: PRODUCT USED FOR UNKNOWN INDICATION
     Route: 048
     Dates: start: 19870101
  3. PROPRANOLOL [Concomitant]
     Indication: TREMOR
     Route: 048
     Dates: start: 19870101

REACTIONS (8)
  - RESTLESSNESS [None]
  - WITHDRAWAL SYNDROME [None]
  - FALL [None]
  - DYSKINESIA [None]
  - INSOMNIA [None]
  - DIZZINESS [None]
  - MUSCULOSKELETAL STIFFNESS [None]
  - AKATHISIA [None]
